FAERS Safety Report 6779136-6 (Version None)
Quarter: 2010Q2

REPORT INFORMATION
  Report Type: 
  Country: None (occurrence: None)
  Receive Date: 20100618
  Receipt Date: 20100608
  Transmission Date: 20101027
  Serious: Yes (Hospitalization)
  Sender: FDA-Public Use
  Company Number: FR-BAYER-201028203GPV

PATIENT
  Age: 7 Month
  Sex: Female

DRUGS (3)
  1. CIFLOX [Suspect]
     Route: 048
     Dates: start: 20100420, end: 20100428
  2. VFEND [Suspect]
     Indication: BRONCHOPULMONARY ASPERGILLOSIS
     Dosage: UNIT DOSE: 200 MG
     Route: 048
     Dates: start: 20100414, end: 20100428
  3. BACTRIM [Suspect]
     Dosage: UNIT DOSE: 1 DF
     Route: 048
     Dates: start: 20100420, end: 20100428

REACTIONS (3)
  - CHOLESTASIS [None]
  - CYTOLYTIC HEPATITIS [None]
  - HYPERCHOLESTEROLAEMIA [None]
